FAERS Safety Report 17545925 (Version 3)
Quarter: 2021Q2

REPORT INFORMATION
  Report Type: Spontaneous
  Country: US (occurrence: US)
  Receive Date: 20200316
  Receipt Date: 20210512
  Transmission Date: 20210716
  Serious: Yes (Other)
  Sender: FDA-Public Use
  Company Number: US-PFIZER INC-2018110175

PATIENT
  Age: 52 Year
  Sex: Female
  Weight: 50.79 kg

DRUGS (1)
  1. XELJANZ XR [Suspect]
     Active Substance: TOFACITINIB CITRATE
     Indication: RHEUMATOID ARTHRITIS
     Dosage: 11 MG, UNK

REACTIONS (4)
  - Immunosuppression [Unknown]
  - Clostridium difficile infection [Unknown]
  - Herpes zoster [Unknown]
  - Coronavirus infection [Unknown]
